FAERS Safety Report 5780900-0 (Version None)
Quarter: 2008Q2

REPORT INFORMATION
  Report Type: 
  Country: None (occurrence: None)
  Receive Date: 20080620
  Receipt Date: 20080613
  Transmission Date: 20081010
  Serious: Yes (Hospitalization)
  Sender: FDA-Public Use
  Company Number: FR-GILEAD-2008-0016643

PATIENT
  Sex: Male

DRUGS (12)
  1. TRUVADA [Suspect]
     Indication: HIV INFECTION
     Route: 048
     Dates: start: 20071128
  2. NORVIR [Suspect]
     Indication: HIV INFECTION
     Route: 048
     Dates: start: 20071128
  3. TELZIR [Suspect]
     Indication: HIV INFECTION
     Route: 048
     Dates: start: 20071128
  4. BACTRIM [Suspect]
     Dates: end: 20071130
  5. DEPAKENE [Suspect]
     Indication: EPILEPSY
     Route: 048
     Dates: start: 20071128, end: 20071205
  6. LEXOMIL [Suspect]
     Route: 048
     Dates: start: 20071128
  7. VITAMIN B1 TAB [Suspect]
     Route: 048
     Dates: start: 20071128
  8. VITAMIN B6 [Suspect]
     Route: 048
     Dates: start: 20071128
  9. TERCIAN [Suspect]
  10. ACETAMINOPHEN [Suspect]
     Dates: start: 20071128
  11. SUBUTEX [Concomitant]
     Route: 060
  12. VALACYCLOVIR HCL [Concomitant]
     Indication: RASH

REACTIONS (2)
  - ANAEMIA [None]
  - NEUTROPENIA [None]
